FAERS Safety Report 6505024-6 (Version None)
Quarter: 2009Q4

REPORT INFORMATION
  Report Type: 
  Country: None (occurrence: None)
  Receive Date: 20091218
  Receipt Date: 20091209
  Transmission Date: 20100525
  Serious: Yes (Other)
  Sender: FDA-Public Use
  Company Number: US-JNJFOC-20091203300

PATIENT
  Age: 66 Year
  Sex: Female
  Weight: 54.43 kg

DRUGS (4)
  1. SIMPLY SLEEP NIGHTTIME [Suspect]
     Indication: INSOMNIA
     Route: 048
  2. SIMPLY SLEEP NIGHTTIME [Suspect]
     Dosage: 25 MG ONCE OR TWICE A NIGHT, EVERY NIGHT, FOR 3-6 MONTHS
     Route: 048
  3. EXTRA STRENGTH TYLENOL [Concomitant]
     Indication: PAIN
  4. EXTRA STRENGTH TYLENOL [Concomitant]
     Indication: HEADACHE

REACTIONS (2)
  - DRUG DEPENDENCE [None]
  - THERAPEUTIC RESPONSE DECREASED [None]
